FAERS Safety Report 15308341 (Version 3)
Quarter: 2018Q3

REPORT INFORMATION
  Report Type: Report from Study
  Country: US (occurrence: US)
  Receive Date: 20180822
  Receipt Date: 20180914
  Transmission Date: 20181010
  Serious: Yes (Death, Hospitalization)
  Sender: FDA-Public Use
  Company Number: US-ACTELION-A-NJ2017-164969

PATIENT
  Age: 76 Year
  Sex: Male
  Weight: 70.75 kg

DRUGS (2)
  1. VELETRI [Suspect]
     Active Substance: EPOPROSTENOL
     Dosage: UNK
     Route: 042
  2. VELETRI [Suspect]
     Active Substance: EPOPROSTENOL
     Indication: PULMONARY HYPERTENSION
     Dosage: 17 NG/KG, PER MIN
     Route: 042

REACTIONS (9)
  - Pain in jaw [Unknown]
  - Constipation [Not Recovered/Not Resolved]
  - Gastric infection [Unknown]
  - Dehydration [Unknown]
  - Pruritus [Unknown]
  - Concomitant disease aggravated [Unknown]
  - Neoplasm malignant [Fatal]
  - Joint swelling [Unknown]
  - Peripheral swelling [Unknown]
